FAERS Safety Report 4351462-X (Version None)
Quarter: 2004Q2

REPORT INFORMATION
  Report Type: 
  Country: None (occurrence: None)
  Receive Date: 20040420
  Receipt Date: 20040420
  Transmission Date: 20050107
  Serious: Yes (Hospitalization)
  Sender: FDA-Public Use
  Company Number: None

PATIENT
  Sex: Male
  Weight: 83.9154 kg

DRUGS (1)
  1. CELEXA [Suspect]
     Indication: DEPRESSION SUICIDAL
     Dosage: ORAL
     Route: 048
     Dates: start: 20040315, end: 20040315

REACTIONS (2)
  - OVERDOSE [None]
  - SUICIDE ATTEMPT [None]
